FAERS Safety Report 8865252 (Version 1)
Quarter: 2012Q4

REPORT INFORMATION
  Report Type: 
  Country: US (occurrence: US)
  Receive Date: 20121024
  Receipt Date: 20121024
  Transmission Date: 20130627
  Serious: No
  Sender: FDA-Public Use
  Company Number: US-AMGEN-USASP2012001982

PATIENT
  Age: 53 Year
  Sex: Female
  Weight: 59.86 kg

DRUGS (6)
  1. ENBREL [Suspect]
     Indication: PRODUCT USED FOR UNKNOWN INDICATION
     Dosage: 50 mg, qwk
     Route: 058
  2. LIPITOR [Concomitant]
     Dosage: 10 mg, UNK
  3. TEKTURNA HCT [Concomitant]
     Dosage: UNK
  4. ARAVA [Concomitant]
     Dosage: 10 mg, UNK
  5. SULFASALAZIN [Concomitant]
     Dosage: 500 mg, UNK
  6. MULTIVITAMIN                       /00831701/ [Concomitant]
     Dosage: UNK

REACTIONS (2)
  - Pain in extremity [Unknown]
  - Hypoaesthesia [Unknown]
